FAERS Safety Report 6288755-5 (Version None)
Quarter: 2009Q3

REPORT INFORMATION
  Report Type: 
  Country: None (occurrence: None)
  Receive Date: 20090729
  Receipt Date: 20090722
  Transmission Date: 20100115
  Serious: No
  Sender: FDA-Public Use
  Company Number: US-JNJFOC-20090707562

PATIENT
  Sex: Female
  Weight: 99.79 kg

DRUGS (1)
  1. DURAGESIC-100 [Suspect]
     Indication: BACK PAIN
     Dosage: 75 UG/HR+75 UG/HR
     Route: 062

REACTIONS (3)
  - APPLICATION SITE IRRITATION [None]
  - DRUG ADMINISTERED AT INAPPROPRIATE SITE [None]
  - WITHDRAWAL SYNDROME [None]
